FAERS Safety Report 8358504-5 (Version None)
Quarter: 2012Q2

REPORT INFORMATION
  Report Type: 
  Country: None (occurrence: None)
  Receive Date: 20120514
  Receipt Date: 20120416
  Transmission Date: 20120825
  Serious: Yes (Hospitalization, Other)
  Sender: FDA-Public Use
  Company Number: JP-PFIZER INC-2012114524

PATIENT
  Age: 55 Year
  Sex: Female

DRUGS (8)
  1. MIGLITOL [Suspect]
     Indication: TYPE 2 DIABETES MELLITUS
     Dosage: 25 MG, 3X/DAY
     Route: 048
     Dates: start: 20110106, end: 20110101
  2. MIGLITOL [Suspect]
     Dosage: 25 MG, 3X/DAY
     Route: 048
     Dates: start: 20110420, end: 20110621
  3. MIGLITOL [Suspect]
     Dosage: 50 MG, 3X/DAY
     Route: 048
     Dates: start: 20110208, end: 20110419
  4. MIGLITOL [Suspect]
     Dosage: 50 MG, 3X/DAY
     Route: 048
     Dates: start: 20110622
  5. HUMALOG [Concomitant]
     Dosage: UNK
  6. BEZATOL [Concomitant]
     Dosage: UNK
  7. LANTUS [Concomitant]
     Dosage: UNK
  8. LEVOTHYROXINE SODIUM [Concomitant]

REACTIONS (5)
  - LYMPHOMA [None]
  - LYMPHADENOPATHY [None]
  - HYPOGLYCAEMIA [None]
  - FAECAL INCONTINENCE [None]
  - DIARRHOEA [None]
